FAERS Safety Report 8819832 (Version 4)
Quarter: 2013Q1

REPORT INFORMATION
  Report Type: Spontaneous
  Country: JP (occurrence: JP)
  Receive Date: 20121001
  Receipt Date: 20130221
  Transmission Date: 20140127
  Serious: Yes (Other)
  Sender: FDA-Public Use
  Company Number: JP-PFIZER INC-2012241661

PATIENT
  Age: 70 Year
  Sex: Male

DRUGS (9)
  1. CELECOX [Suspect]
     Indication: BACK PAIN
     Dosage: 100 MG, 1X/DAY
     Route: 048
     Dates: start: 20120921, end: 20120921
  2. CELECOX [Interacting]
     Indication: POST-TRAUMATIC PAIN
     Dosage: 600 MG, DAILY
     Route: 048
     Dates: start: 20120920, end: 20120920
  3. CELECOX [Interacting]
     Dosage: 200 MG, 2X/DAY
     Route: 048
     Dates: start: 20120921, end: 20120924
  4. MAINTATE [Interacting]
     Dosage: 3.75 MG, 1X/DAY
     Route: 048
  5. GASLON [Concomitant]
     Indication: PROPHYLAXIS
     Dosage: UNK
     Dates: start: 20120921, end: 20120921
  6. MOHRUS [Concomitant]
     Indication: BACK PAIN
     Dosage: TAPE
     Dates: start: 20120921
  7. WARFARIN [Concomitant]
     Dosage: UNK
     Route: 048
  8. DIART [Concomitant]
     Dosage: UNK
  9. LOXONIN [Concomitant]
     Indication: BACK PAIN
     Dosage: UNK
     Dates: start: 20120709

REACTIONS (3)
  - Drug interaction [Recovered/Resolved]
  - Blood pressure decreased [Recovered/Resolved]
  - Off label use [Recovered/Resolved]
